FAERS Safety Report 7007131 (Version 2)
Quarter: 2015Q2

REPORT INFORMATION
  Report Type: Spontaneous
  Country: IT (occurrence: None)
  Receive Date: 20090519
  Receipt Date: 20150403
  Transmission Date: 20150821
  Serious: Yes (Other)
  Sender: FDA-Public Use
  Company Number: 266478

PATIENT
  Age: 53 Year
  Sex: Female

DRUGS (8)
  1. FEMARA [Concomitant]
     Active Substance: LETROZOLE
  2. PACLITAXEL TEVA [Suspect]
     Active Substance: PACLITAXEL
     Indication: BREAST CANCER
     Dosage: CYCLICAL
     Route: 042
     Dates: start: 20090422, end: 20090422
  3. RANITIDINE [Concomitant]
     Active Substance: RANITIDINE\RANITIDINE HYDROCHLORIDE
  4. ISOPTIN [Concomitant]
     Active Substance: VERAPAMIL HYDROCHLORIDE
  5. TRIMETON [Concomitant]
     Active Substance: CHLORPHENIRAMINE MALEATE
  6. CARBOPLATIN (CARBOPLATIN) [Suspect]
     Active Substance: CARBOPLATIN
     Indication: BREAST CANCER
     Dosage: 230 MG, UNKNOWN, INTRAVENOUS
     Route: 042
     Dates: start: 20090422, end: 20090422
  7. NAVOBAN [Concomitant]
     Active Substance: TROPISETRON HYDROCHLORIDE
  8. CARDIOASPIRIN [Concomitant]
     Active Substance: ASPIRIN

REACTIONS (4)
  - Erythema [None]
  - Oedema peripheral [None]
  - Oropharyngeal pain [None]
  - Hypersensitivity [None]

NARRATIVE: CASE EVENT DATE: 20090422
